FAERS Safety Report 5199192-9 (Version None)
Quarter: 2007Q1

REPORT INFORMATION
  Report Type: 
  Country: None (occurrence: None)
  Receive Date: 20070104
  Receipt Date: 20061230
  Transmission Date: 20070707
  Serious: Yes (Other)
  Sender: FDA-Public Use
  Company Number: US-PFIZER INC-2006142163

PATIENT
  Sex: Male
  Weight: 65.8 kg

DRUGS (2)
  1. LIPITOR [Suspect]
     Indication: BLOOD CHOLESTEROL INCREASED
  2. DRUG, UNSPECIFIED [Concomitant]

REACTIONS (2)
  - MACULOPATHY [None]
  - MENTAL RETARDATION SEVERITY UNSPECIFIED [None]
